FAERS Safety Report 7520108-1 (Version None)
Quarter: 2011Q2

REPORT INFORMATION
  Report Type: 
  Country: None (occurrence: None)
  Receive Date: 20110602
  Receipt Date: 20110526
  Transmission Date: 20111010
  Serious: Yes (Death, Hospitalization, Other)
  Sender: FDA-Public Use
  Company Number: CO-PFIZER INC-2011105414

PATIENT
  Age: 39 Year
  Sex: Male

DRUGS (3)
  1. ACETAMINOPHEN [Concomitant]
     Dosage: UNK
     Dates: start: 20100725
  2. PHENYTOIN SODIUM CAP [Suspect]
     Dosage: UNK
     Route: 048
     Dates: start: 20100725, end: 20100731
  3. RANITIDINE [Concomitant]
     Dosage: UNK
     Dates: start: 20100725

REACTIONS (7)
  - DIZZINESS [None]
  - MALAISE [None]
  - VOMITING [None]
  - NAUSEA [None]
  - HEADACHE [None]
  - DEATH [None]
  - LOSS OF CONSCIOUSNESS [None]
